FAERS Safety Report 6115428-1 (Version None)
Quarter: 2009Q1

REPORT INFORMATION
  Report Type: 
  Country: None (occurrence: None)
  Receive Date: 20090313
  Receipt Date: 20090304
  Transmission Date: 20090719
  Serious: Yes (Hospitalization)
  Sender: FDA-Public Use
  Company Number: FR-AVENTIS-200910886FR

PATIENT
  Age: 48 Year
  Sex: Female

DRUGS (3)
  1. PROFENID [Suspect]
     Route: 042
     Dates: start: 20090304, end: 20090304
  2. LASIX [Suspect]
     Route: 042
     Dates: start: 20090304, end: 20090304
  3. CONTRAST MEDIA [Concomitant]
     Route: 042
     Dates: start: 20090304, end: 20090304

REACTIONS (6)
  - CHILLS [None]
  - DRUG ADMINISTRATION ERROR [None]
  - FEELING HOT [None]
  - HEADACHE [None]
  - MEDICATION ERROR [None]
  - TREMOR [None]
